FAERS Safety Report 9667610 (Version 2)
Quarter: 2013Q4

REPORT INFORMATION
  Report Type: Report from Study
  Country: US (occurrence: US)
  Receive Date: 20131104
  Receipt Date: 20131104
  Transmission Date: 20140711
  Serious: Yes (Other)
  Sender: FDA-Public Use
  Company Number: US-BAYER-2013-072171

PATIENT
  Age: 51 Year
  Sex: Female

DRUGS (4)
  1. BETASERON [Suspect]
     Indication: RELAPSING-REMITTING MULTIPLE SCLEROSIS
     Dosage: 8 MIU, QOD
     Route: 058
     Dates: start: 20110705
  2. MOBIC [Concomitant]
     Indication: ARTHRITIS
     Dosage: UNK,  UNK, EVERY NIGHT
  3. ASPIRIN [Concomitant]
  4. IBUPROFEN [Concomitant]
     Indication: HEADACHE

REACTIONS (9)
  - Haemorrhagic diathesis [Recovered/Resolved]
  - Wound haemorrhage [Not Recovered/Not Resolved]
  - Impaired healing [Not Recovered/Not Resolved]
  - Injection site pain [Recovered/Resolved]
  - Injection site discolouration [Not Recovered/Not Resolved]
  - Injection site scar [Recovered/Resolved]
  - Blood testosterone decreased [Not Recovered/Not Resolved]
  - Contusion [Not Recovered/Not Resolved]
  - Skin mass [Not Recovered/Not Resolved]
